FAERS Safety Report 4877841-X (Version None)
Quarter: 2005Q4

REPORT INFORMATION
  Report Type: 
  Country: None (occurrence: None)
  Receive Date: 20051206
  Receipt Date: 20050901
  Transmission Date: 20060501
  Serious: No
  Sender: FDA-Public Use
  Company Number: USA0509107175

PATIENT
  Age: 48 Year
  Sex: Female

DRUGS (1)
  1. CYMBALTA [Suspect]
     Dosage: 60 MG IN THE EVENING
     Dates: start: 20041101

REACTIONS (3)
  - EYE INFLAMMATION [None]
  - EYELID OEDEMA [None]
  - OCULAR HYPERAEMIA [None]
